FAERS Safety Report 5822243-2 (Version None)
Quarter: 2008Q3

REPORT INFORMATION
  Report Type: 
  Country: None (occurrence: None)
  Receive Date: 20080722
  Receipt Date: 20080703
  Transmission Date: 20090109
  Serious: No
  Sender: FDA-Public Use
  Company Number: 8034592

PATIENT
  Age: 8 Year
  Sex: Female

DRUGS (2)
  1. EQUASYM [Suspect]
     Indication: ATTENTION DEFICIT/HYPERACTIVITY DISORDER
     Dosage: 20 MG /D
     Dates: start: 20070131
  2. METHYLPHENIDATE HCL [Concomitant]

REACTIONS (8)
  - ANXIETY [None]
  - DECREASED APPETITE [None]
  - FATIGUE [None]
  - GASTROINTESTINAL PAIN [None]
  - HYPOTONIA [None]
  - MOROSE [None]
  - SLEEP DISORDER [None]
  - TIC [None]
